FAERS Safety Report 7225967-8 (Version None)
Quarter: 2011Q1

REPORT INFORMATION
  Report Type: 
  Country: None (occurrence: None)
  Receive Date: 20110113
  Receipt Date: 20110112
  Transmission Date: 20110831
  Serious: Yes (Hospitalization)
  Sender: FDA-Public Use
  Company Number: FR-AMGEN-FRASP2010011123

PATIENT

DRUGS (6)
  1. NEULASTA [Suspect]
     Indication: CHEMOTHERAPY
     Dosage: 6 MG, AFTER CHEMO
     Route: 058
     Dates: start: 20100925, end: 20101014
  2. ENDOXAN                            /00021101/ [Concomitant]
     Dosage: UNK
     Route: 042
     Dates: start: 20100924, end: 20101014
  3. HERCEPTIN [Concomitant]
     Dosage: 150 UNK, UNK
     Route: 042
     Dates: start: 20100924
  4. TAXOTERE [Concomitant]
     Dosage: 80 MG, UNK
     Route: 042
     Dates: start: 20100924, end: 20101014
  5. LEVOTHYROX [Concomitant]
     Route: 042
  6. PROFENID                           /00321701/ [Concomitant]
     Route: 048

REACTIONS (1)
  - CYTOLYTIC HEPATITIS [None]
